FAERS Safety Report 8583483-5 (Version None)
Quarter: 2012Q3

REPORT INFORMATION
  Report Type: 
  Country: None (occurrence: None)
  Receive Date: 20120809
  Receipt Date: 20120802
  Transmission Date: 20120928
  Serious: Yes (Other)
  Sender: FDA-Public Use
  Company Number: JP-VERTEX PHARMACEUTICALS INC.-AE-2012-011252

PATIENT
  Sex: Male

DRUGS (3)
  1. TELAVIC (TELAPREVIR) [Suspect]
     Route: 048
     Dates: end: 20120101
  2. PEG-INTRON [Concomitant]
     Route: 058
  3. REBETOL [Concomitant]
     Route: 048

REACTIONS (2)
  - RETINOPATHY [None]
  - HAEMATOCHEZIA [None]
